FAERS Safety Report 4611367-3 (Version None)
Quarter: 2005Q1

REPORT INFORMATION
  Report Type: 
  Country: None (occurrence: None)
  Receive Date: 20050317
  Receipt Date: 20050124
  Transmission Date: 20050727
  Serious: Yes (Life-Threatening)
  Sender: FDA-Public Use
  Company Number: US-BRISTOL-MYERS SQUIBB COMPANY-12836573

PATIENT
  Age: 54 Year
  Sex: Female
  Weight: 49 kg

DRUGS (4)
  1. ZERIT [Suspect]
     Indication: HIV INFECTION
     Route: 048
     Dates: start: 20000601
  2. TEQUIN [Suspect]
  3. EPIVIR [Concomitant]
  4. CRIXIVAN [Concomitant]

REACTIONS (2)
  - BLOOD POTASSIUM DECREASED [None]
  - TORSADE DE POINTES [None]
